FAERS Safety Report 11702003 (Version 1)
Quarter: 2015Q4

REPORT INFORMATION
  Report Type: Report from Study
  Country: US (occurrence: US)
  Receive Date: 20151105
  Receipt Date: 20151105
  Transmission Date: 20160304
  Serious: Yes (Other)
  Sender: FDA-Public Use
  Company Number: US-AMGEN-USASL2015114956

PATIENT
  Sex: Male

DRUGS (1)
  1. ENBREL [Suspect]
     Active Substance: ETANERCEPT
     Indication: CONNECTIVE TISSUE DISORDER
     Dosage: 50 MG, QWK
     Route: 065

REACTIONS (4)
  - Interstitial lung disease [Unknown]
  - Arthritis [Unknown]
  - Raynaud^s phenomenon [Unknown]
  - Off label use [Unknown]
